FAERS Safety Report 24976284 (Version 1)
Quarter: 2025Q1

REPORT INFORMATION
  Report Type: Spontaneous
  Country: US (occurrence: US)
  Receive Date: 20250217
  Receipt Date: 20250217
  Transmission Date: 20250409
  Serious: Yes (Other)
  Sender: TEVA
  Company Number: US-TEVA-VS-3298031

PATIENT
  Sex: Female

DRUGS (2)
  1. AUSTEDO [Suspect]
     Active Substance: DEUTETRABENAZINE
     Indication: Major depression
     Dosage: TAKE 1 TABLET (9 MG) MOUTH TWICE A DAY (ALONG WITH A 12 MG TABLET FOR 21 MG TOTAL DOSE)
     Route: 048
  2. AUSTEDO [Suspect]
     Active Substance: DEUTETRABENAZINE
     Indication: Major depression
     Dosage: TAKE 1 TABLET (9 MG) MOUTH TWICE A DAY (ALONG WITH A 12 MG TABLET FOR 21 MG TOTAL DOSE)
     Route: 048

REACTIONS (4)
  - Diabetes mellitus [Unknown]
  - Malaise [Unknown]
  - Product use in unapproved indication [Unknown]
  - Therapeutic product effect incomplete [Unknown]
